FAERS Safety Report 11409006 (Version 2)
Quarter: 2016Q3

REPORT INFORMATION
  Report Type: Report from Study
  Country: US (occurrence: US)
  Receive Date: 20150824
  Receipt Date: 20160811
  Transmission Date: 20161109
  Serious: Yes (Other)
  Sender: FDA-Public Use
  Company Number: US-ROCHE-1130350

PATIENT
  Sex: Male
  Weight: 201 kg

DRUGS (36)
  1. SYNTHROID [Concomitant]
     Active Substance: LEVOTHYROXINE SODIUM
     Route: 065
  2. HYDROCORTISONE. [Concomitant]
     Active Substance: HYDROCORTISONE
     Dosage: 20 MG IN MORNING + 10 MG IN EVENING
     Route: 065
  3. DIOVAN [Concomitant]
     Active Substance: VALSARTAN
     Route: 048
  4. FLEXERIL [Concomitant]
     Active Substance: CYCLOBENZAPRINE HYDROCHLORIDE
     Route: 065
  5. OMEPRAZOLE. [Concomitant]
     Active Substance: OMEPRAZOLE
     Route: 048
  6. TRAMADOL. [Concomitant]
     Active Substance: TRAMADOL
     Route: 065
  7. ZANTAC [Concomitant]
     Active Substance: RANITIDINE HYDROCHLORIDE
  8. PREDNISONE. [Concomitant]
     Active Substance: PREDNISONE
     Indication: HYPERTENSION
     Dosage: 2.5-10 MG
     Route: 048
  9. LEVOTHYROXINE. [Concomitant]
     Active Substance: LEVOTHYROXINE
     Route: 048
  10. DIOVAN [Concomitant]
     Active Substance: VALSARTAN
     Route: 048
  11. NUTROPIN AQ [Suspect]
     Active Substance: SOMATROPIN
     Route: 058
  12. ACTOPLUS MET [Concomitant]
     Active Substance: METFORMIN HYDROCHLORIDE\PIOGLITAZONE HYDROCHLORIDE
     Dosage: 15-850 MG
     Route: 048
  13. FERGON [Concomitant]
     Active Substance: FERROUS GLUCONATE
     Route: 048
  14. ANDROGEL [Concomitant]
     Active Substance: TESTOSTERONE
     Dosage: 3 PUMPS A DAY
     Route: 065
  15. ROBAXIN [Concomitant]
     Active Substance: METHOCARBAMOL
     Indication: MYALGIA
  16. VITAMIN B12 [Concomitant]
     Active Substance: CYANOCOBALAMIN
     Route: 048
  17. KETOCONAZOLE. [Concomitant]
     Active Substance: KETOCONAZOLE
     Route: 061
  18. SYNTHROID [Concomitant]
     Active Substance: LEVOTHYROXINE SODIUM
     Route: 065
  19. ANDROGEL [Concomitant]
     Active Substance: TESTOSTERONE
     Dosage: 20.25 MG/1.25 GRAMS IN METERED DOSE PUMP
     Route: 065
  20. TYLENOL [Concomitant]
     Active Substance: ACETAMINOPHEN
     Dosage: PRN
     Route: 065
  21. ACTOS [Concomitant]
     Active Substance: PIOGLITAZONE HYDROCHLORIDE
     Route: 048
  22. NUTROPIN AQ [Suspect]
     Active Substance: SOMATROPIN
     Route: 058
  23. NUTROPIN AQ [Suspect]
     Active Substance: SOMATROPIN
     Route: 058
  24. CARVEDILOL. [Suspect]
     Active Substance: CARVEDILOL
     Indication: PRODUCT USED FOR UNKNOWN INDICATION
     Route: 048
  25. VITAMIN D3 [Concomitant]
     Active Substance: CHOLECALCIFEROL
     Route: 048
  26. NUTROPIN AQ [Suspect]
     Active Substance: SOMATROPIN
     Indication: HYPOPITUITARISM
     Route: 058
  27. DESMOPRESSIN ACETATE. [Concomitant]
     Active Substance: DESMOPRESSIN ACETATE
     Dosage: 0.1-0.2 MG
     Route: 065
  28. ELAVIL [Concomitant]
     Active Substance: AMITRIPTYLINE HYDROCHLORIDE
  29. COZAAR [Concomitant]
     Active Substance: LOSARTAN POTASSIUM
     Route: 048
  30. COZAAR [Concomitant]
     Active Substance: LOSARTAN POTASSIUM
     Route: 048
  31. ANDROGEL [Concomitant]
     Active Substance: TESTOSTERONE
     Route: 061
     Dates: start: 200009
  32. TESTODERM [Concomitant]
     Active Substance: TESTOSTERONE
     Route: 065
  33. NUTROPIN AQ [Suspect]
     Active Substance: SOMATROPIN
     Route: 058
  34. PREDNISONE. [Concomitant]
     Active Substance: PREDNISONE
     Dosage: 2 IN AM AND 1 IN AFTERNOON DAILY
     Route: 065
  35. DEPO-TESTOSTERONE [Concomitant]
     Active Substance: TESTOSTERONE CYPIONATE
     Route: 030
  36. FLEXERIL (CEFIXIME) [Concomitant]
     Route: 065

REACTIONS (14)
  - Erectile dysfunction [Unknown]
  - Temperature intolerance [Unknown]
  - Malaise [Unknown]
  - Fatigue [Unknown]
  - Blood pressure abnormal [Unknown]
  - Urinary incontinence [Unknown]
  - Dry skin [Unknown]
  - Poor quality sleep [Unknown]
  - Deafness [Unknown]
  - Anosmia [Unknown]
  - Osteoporosis [Unknown]
  - Muscular weakness [Unknown]
  - Hyperhidrosis [Unknown]
  - Dyspepsia [Unknown]
